FAERS Safety Report 5915859-6 (Version None)
Quarter: 2008Q4

REPORT INFORMATION
  Report Type: 
  Country: None (occurrence: None)
  Receive Date: 20081010
  Receipt Date: 20080929
  Transmission Date: 20090506
  Serious: Yes (Other)
  Sender: FDA-Public Use
  Company Number: US-PFIZER INC-2008082547

PATIENT
  Sex: Female
  Weight: 63.5 kg

DRUGS (7)
  1. LYRICA [Suspect]
     Indication: NEURALGIA
     Dates: start: 20080401
  2. CELEXA [Concomitant]
  3. DETROL LA [Concomitant]
  4. COREG [Concomitant]
  5. ADVAIR DISKUS 100/50 [Concomitant]
  6. ALBUTEROL [Concomitant]
  7. ZOCOR [Concomitant]

REACTIONS (4)
  - ACCIDENTAL OVERDOSE [None]
  - ACTIVITIES OF DAILY LIVING IMPAIRED [None]
  - SEDATION [None]
  - SOMNOLENCE [None]
